FAERS Safety Report 8929200 (Version 2)
Quarter: 2013Q4

REPORT INFORMATION
  Report Type: Spontaneous
  Country: GB (occurrence: GB)
  Receive Date: 20121127
  Receipt Date: 20131023
  Transmission Date: 20140711
  Serious: Yes (Other)
  Sender: FDA-Public Use
  Company Number: PHHY2012GB106527

PATIENT
  Age: 79 Year
  Sex: Male

DRUGS (12)
  1. METFORMIN [Suspect]
     Indication: TYPE 2 DIABETES MELLITUS
     Dosage: EVERY MORNING AND EVERY NIGHTDOSE ( 6 IN TOTAL)
  2. LANTUS [Suspect]
     Indication: TYPE 2 DIABETES MELLITUS
     Dosage: EVERY MORNING DOSE OF 17 UNITS
  3. GLICLAZIDE [Concomitant]
     Indication: DIABETES MELLITUS
     Dosage: 2 DF, QD
  4. AMLODIPINE [Concomitant]
     Dosage: 5 MG
  5. RAMIPRIL [Concomitant]
     Dosage: 5 MG
  6. TRITACE [Concomitant]
     Dosage: 10 MG, UNK
     Route: 048
  7. BRILIQUE [Concomitant]
     Dosage: 90 MG, UNK
  8. BISOPROLOL [Concomitant]
     Indication: CARDIAC DISORDER
     Dosage: UNK UKN, UNK
  9. ASPIRIN [Concomitant]
     Dosage: 75 MG, UNK
  10. ZYDOL [Concomitant]
     Dosage: 50 MG, UNK
  11. PARACETAMOL [Concomitant]
     Dosage: 500 MG, UNK
  12. OMEPRAZOLE [Concomitant]
     Dosage: 40 MG, UNK
     Route: 048

REACTIONS (1)
  - Dyspnoea [Not Recovered/Not Resolved]
